FAERS Safety Report 24736546 (Version 1)
Quarter: 2024Q4

REPORT INFORMATION
  Report Type: Spontaneous
  Country: US (occurrence: US)
  Receive Date: 20241216
  Receipt Date: 20241216
  Transmission Date: 20250115
  Serious: No
  Sender: TEVA
  Company Number: US-TEVA-VS-3271216

PATIENT

DRUGS (1)
  1. DEXTROAMPHETAMINE [Suspect]
     Active Substance: DEXTROAMPHETAMINE
     Indication: Product used for unknown indication
     Dosage: DOSE FORM: EXTENDED RELEASE CAPSULE
     Route: 065

REACTIONS (5)
  - Urticaria [Unknown]
  - Hyperhidrosis [Unknown]
  - Nausea [Unknown]
  - Palpitations [Unknown]
  - Lethargy [Unknown]
